FAERS Safety Report 6730533-4 (Version None)
Quarter: 2010Q2

REPORT INFORMATION
  Report Type: 
  Country: None (occurrence: None)
  Receive Date: 20100518
  Receipt Date: 20100505
  Transmission Date: 20101027
  Serious: Yes (Other)
  Sender: FDA-Public Use
  Company Number: GB-JNJCH-2007078940

PATIENT
  Age: 21 Year
  Sex: Female

DRUGS (4)
  1. AZITHROMYCIN [Suspect]
     Indication: INFLAMMATION
     Dates: start: 20030101, end: 20030101
  2. COLOMYCIN [Interacting]
     Indication: PSEUDOMONAS INFECTION
     Dosage: TEXT:2 DF
     Route: 042
  3. IBUPROFEN [Interacting]
     Dates: start: 20030101, end: 20030101
  4. TOBRAMYCIN [Interacting]
     Indication: PSEUDOMONAS INFECTION
     Route: 042

REACTIONS (10)
  - ARTHROPATHY [None]
  - BLOOD CREATININE INCREASED [None]
  - BLOOD UREA INCREASED [None]
  - DRUG INTERACTION [None]
  - DYSPEPSIA [None]
  - HYPOPHAGIA [None]
  - INFLUENZA LIKE ILLNESS [None]
  - RENAL FAILURE ACUTE [None]
  - VOMITING [None]
  - WEIGHT DECREASED [None]
